FAERS Safety Report 8783381 (Version 1)
Quarter: 2012Q4

REPORT INFORMATION
  Report Type: Report from Study
  Country: US (occurrence: US)
  Receive Date: 20120913
  Receipt Date: 20120913
  Transmission Date: 20130627
  Serious: No
  Sender: FDA-Public Use
  Company Number: US-VERTEX PHARMACEUTICAL INC.-AE-2012-008234

PATIENT

DRUGS (5)
  1. INCIVEK [Suspect]
     Indication: HEPATITIS C
     Route: 048
     Dates: start: 20120507
  2. RIBAPAK [Concomitant]
     Indication: HEPATITIS C
     Route: 048
     Dates: start: 20120507
  3. PEGASYS [Concomitant]
     Indication: HEPATITIS C
     Route: 058
     Dates: start: 20120507
  4. CENTRUM SILVER [Concomitant]
  5. OXYCODONE [Concomitant]

REACTIONS (9)
  - Influenza like illness [Unknown]
  - Depression [Unknown]
  - Chills [Unknown]
  - Skin discolouration [Unknown]
  - Weight decreased [Unknown]
  - Constipation [Unknown]
  - Stomatitis [Unknown]
  - Fatigue [Unknown]
  - Pruritus [Unknown]
